FAERS Safety Report 23803829 (Version 1)
Quarter: 2024Q2

REPORT INFORMATION
  Report Type: Spontaneous
  Country: CN (occurrence: CN)
  Receive Date: 20240501
  Receipt Date: 20240501
  Transmission Date: 20240715
  Serious: Yes (Other)
  Sender: FDA-Public Use
  Company Number: CN-PFIZER INC-PV202400056008

PATIENT
  Age: 29 Year
  Sex: Male
  Weight: 62 kg

DRUGS (2)
  1. CRISABOROLE [Suspect]
     Active Substance: CRISABOROLE
     Indication: Tinea cruris
     Dosage: 1 G, 1X/DAY
     Route: 061
     Dates: start: 20240420, end: 20240421
  2. MICONAZOLE NITRATE [Suspect]
     Active Substance: MICONAZOLE NITRATE
     Indication: Tinea cruris
     Dosage: 1 G, 1X/DAY
     Route: 061
     Dates: start: 20240420, end: 20240421

REACTIONS (4)
  - Rash erythematous [Recovering/Resolving]
  - Skin weeping [Recovering/Resolving]
  - Pruritus [Recovering/Resolving]
  - Off label use [Unknown]

NARRATIVE: CASE EVENT DATE: 20240420
